FAERS Safety Report 15322204 (Version 2)
Quarter: 2018Q3

REPORT INFORMATION
  Report Type: Spontaneous
  Country: US (occurrence: US)
  Receive Date: 20180827
  Receipt Date: 20180828
  Transmission Date: 20181010
  Serious: Yes (Other)
  Sender: FDA-Public Use
  Company Number: US-PFIZER INC-2018338127

PATIENT
  Age: 46 Year
  Sex: Female
  Weight: 59.86 kg

DRUGS (1)
  1. EMBEDA [Suspect]
     Active Substance: MORPHINE SULFATE\NALTREXONE HYDROCHLORIDE
     Indication: PAIN
     Dosage: UNK UNK, 2X/DAY [MORPHINE SULFATE 30 MG]/ [NALTREXONE HYDROCHLORIDE 1.2 MG]
     Route: 048
     Dates: start: 201806

REACTIONS (4)
  - Drug ineffective [Unknown]
  - Drug abuse [Unknown]
  - Muscle spasms [Unknown]
  - Suicidal ideation [Unknown]
